FAERS Safety Report 4726053-9 (Version None)
Quarter: 2005Q3

REPORT INFORMATION
  Report Type: 
  Country: None (occurrence: None)
  Receive Date: 20050727
  Receipt Date: 20050715
  Transmission Date: 20060218
  Serious: Yes (Hospitalization)
  Sender: FDA-Public Use
  Company Number: 2005SE04172

PATIENT
  Age: 8874 Day
  Sex: Female
  Weight: 50 kg

DRUGS (1)
  1. QUETIAPINE [Suspect]
     Route: 048
     Dates: start: 20041227, end: 20050101

REACTIONS (1)
  - SCHIZOPHRENIA [None]
